FAERS Safety Report 10243868 (Version 2)
Quarter: 2014Q2

REPORT INFORMATION
  Report Type: Report from Study
  Country: US (occurrence: US)
  Receive Date: 20140618
  Receipt Date: 20140630
  Transmission Date: 20141212
  Serious: Yes (Hospitalization)
  Sender: FDA-Public Use
  Company Number: US-JNJFOC-20140609082

PATIENT
  Age: 17 Year
  Sex: Female
  Weight: 63.68 kg

DRUGS (17)
  1. REMICADE [Suspect]
     Indication: CROHN^S DISEASE
     Route: 042
     Dates: start: 20130729
  2. 5-ASA [Concomitant]
     Route: 048
  3. PULMICORT [Concomitant]
     Route: 065
  4. BENADRYL [Concomitant]
     Route: 065
  5. CALCIUM [Concomitant]
     Route: 065
  6. COLACE [Concomitant]
     Route: 065
  7. IRON [Concomitant]
     Route: 065
  8. ALLEGRA D [Concomitant]
     Route: 065
  9. FOLIC ACID [Concomitant]
     Route: 065
  10. ZYVOX [Concomitant]
     Route: 065
  11. BACTROBAN [Concomitant]
     Route: 065
  12. NAPROSYN [Concomitant]
     Route: 065
  13. PRILOSEC [Concomitant]
     Route: 065
  14. AFRIN SINUS [Concomitant]
     Route: 065
  15. RIFADIN [Concomitant]
     Route: 065
  16. ZOLOFT [Concomitant]
     Route: 065
  17. NORCO [Concomitant]
     Route: 065

REACTIONS (1)
  - Crohn^s disease [Recovered/Resolved]
